FAERS Safety Report 16618435 (Version 1)
Quarter: 2019Q3

REPORT INFORMATION
  Report Type: Spontaneous
  Country: PL (occurrence: PL)
  Receive Date: 20190723
  Receipt Date: 20190723
  Transmission Date: 20191004
  Serious: Yes (Death)
  Sender: FDA-Public Use
  Company Number: PL-MYLANLABS-2019M1068708

PATIENT
  Age: 55 Year
  Sex: Female

DRUGS (11)
  1. DOXORUBICIN [Concomitant]
     Active Substance: DOXORUBICIN
     Dosage: UNK
  2. BLEOMYCIN [Concomitant]
     Active Substance: BLEOMYCIN SULFATE
     Dosage: UNK
  3. FULVESTRANT. [Concomitant]
     Active Substance: FULVESTRANT
     Dosage: UNK
  4. PACLITAXEL. [Concomitant]
     Active Substance: PACLITAXEL
     Dosage: UNK
  5. DOCETAXEL. [Concomitant]
     Active Substance: DOCETAXEL
     Dosage: UNK
  6. EXEMESTANE. [Suspect]
     Active Substance: EXEMESTANE
     Indication: DISEASE PROGRESSION
     Dosage: UNK
  7. CAPECITABINE. [Suspect]
     Active Substance: CAPECITABINE
     Indication: DISEASE PROGRESSION
     Dosage: 2000 MILLIGRAM/SQ. METER
     Route: 048
  8. LETROZOLE. [Suspect]
     Active Substance: LETROZOLE
     Indication: DISEASE PROGRESSION
     Dosage: UNK
  9. CYCLOPHOSPHAMIDE. [Concomitant]
     Active Substance: CYCLOPHOSPHAMIDE
     Dosage: UNK
  10. METHOTREXATE. [Concomitant]
     Active Substance: METHOTREXATE
     Dosage: UNK
  11. VINORELBINE [Concomitant]
     Active Substance: VINORELBINE TARTRATE
     Dosage: UNK

REACTIONS (3)
  - Congenital haematological disorder [Fatal]
  - Lymphoedema [Fatal]
  - Deep vein thrombosis [Fatal]
